FAERS Safety Report 5416151-9 (Version None)
Quarter: 2007Q3

REPORT INFORMATION
  Report Type: 
  Country: None (occurrence: None)
  Receive Date: 20070718
  Receipt Date: 20060522
  Transmission Date: 20080115
  Serious: Yes (Other)
  Sender: FDA-Public Use
  Company Number: 2005169536

PATIENT
  Age: 45 Year
  Sex: Female
  Weight: 65.7716 kg

DRUGS (2)
  1. CELEBREX [Suspect]
     Indication: ARTHRALGIA
     Dosage: (2 IN 1 D), ORAL
     Route: 048
  2. CELEBREX [Suspect]
     Indication: BACK PAIN
     Dosage: (2 IN 1 D), ORAL
     Route: 048

REACTIONS (1)
  - MYOCARDIAL INFARCTION [None]
